FAERS Safety Report 12772197 (Version 2)
Quarter: 2016Q3

REPORT INFORMATION
  Report Type: Spontaneous
  Country: US (occurrence: US)
  Receive Date: 20160922
  Receipt Date: 20160929
  Transmission Date: 20161109
  Serious: Yes (Hospitalization, Other)
  Sender: FDA-Public Use
  Company Number: US-SA-2016SA171640

PATIENT
  Age: 76 Year
  Sex: Male

DRUGS (2)
  1. ASPIRIN. [Concomitant]
     Active Substance: ASPIRIN
     Indication: ANTIPLATELET THERAPY
  2. CLOPIDOGREL BISULFATE. [Suspect]
     Active Substance: CLOPIDOGREL BISULFATE
     Indication: ANTIPLATELET THERAPY
     Route: 065

REACTIONS (14)
  - Electrocardiogram abnormal [Recovering/Resolving]
  - Drug resistance [Unknown]
  - Ejection fraction decreased [Recovering/Resolving]
  - Echocardiogram abnormal [Recovering/Resolving]
  - Coronary artery occlusion [Recovering/Resolving]
  - Blood creatine phosphokinase MB increased [Recovering/Resolving]
  - Vascular stent thrombosis [Recovered/Resolved]
  - Chest pain [Recovering/Resolving]
  - Chest discomfort [Recovering/Resolving]
  - Ventricular hypokinesia [Recovering/Resolving]
  - Sinus bradycardia [Recovered/Resolved]
  - Acute myocardial infarction [Recovering/Resolving]
  - Troponin increased [Recovering/Resolving]
  - CYP2C19 polymorphism [Unknown]
